FAERS Safety Report 8157779 (Version 3)
Quarter: 2013Q1

REPORT INFORMATION
  Report Type: Spontaneous
  Country: US (occurrence: US)
  Receive Date: 20110927
  Receipt Date: 20130215
  Transmission Date: 20140127
  Serious: Yes (Other)
  Sender: FDA-Public Use
  Company Number: US-ASTRAZENECA-2011SE12483

PATIENT
  Age: 339 Month
  Sex: Female
  Weight: 156.5 kg

DRUGS (12)
  1. SEROQUEL [Suspect]
     Indication: INSOMNIA
     Route: 048
     Dates: start: 200203, end: 200609
  2. SEROQUEL [Suspect]
     Indication: BIPOLAR DISORDER
     Route: 048
     Dates: start: 200203, end: 200609
  3. SEROQUEL [Suspect]
     Indication: INSOMNIA
     Dosage: TAKE  TWO TABLETS AT NIGHT AND 2 TABS REPEAT
     Route: 048
     Dates: start: 20030813
  4. SEROQUEL [Suspect]
     Indication: BIPOLAR DISORDER
     Dosage: TAKE  TWO TABLETS AT NIGHT AND 2 TABS REPEAT
     Route: 048
     Dates: start: 20030813
  5. PROZAC [Concomitant]
     Dosage: 40 MG TO 60 MG EVERY MORNING
     Dates: start: 20030618
  6. KLONOPIN [Concomitant]
     Dosage: 2 MG BID AND 1.5 MG HS
     Dates: start: 20030618
  7. KLONOPIN [Concomitant]
     Dosage: 3.5 MG AM, 3.5 MG AT 4 PM AND 3 MG HS
     Dates: start: 20030813, end: 20030820
  8. PHENERGAN [Concomitant]
     Dates: start: 20030618, end: 20030820
  9. GEODON [Concomitant]
     Dosage: 6/60 TWO PO Q DAY
     Dates: start: 20030618
  10. GEODON [Concomitant]
     Dosage: 60 MG TO 120 MG
     Dates: start: 20030813
  11. LEXAPRO [Concomitant]
     Dates: start: 20030813
  12. TOPROL XL [Concomitant]
     Dates: start: 20030618

REACTIONS (4)
  - Pancreatitis [Unknown]
  - Diabetic coma [Unknown]
  - Type 2 diabetes mellitus [Unknown]
  - Insulin resistance [Unknown]
